APPROVED DRUG PRODUCT: CHABELINA FE
Active Ingredient: ETHINYL ESTRADIOL; NORETHINDRONE ACETATE
Strength: 0.02MG,0.03MG,0.035MG;1MG,1MG,1MG
Dosage Form/Route: TABLET;ORAL-28
Application: A202962 | Product #001 | TE Code: AB
Applicant: NOVAST LABORATORIES LTD
Approved: Apr 15, 2020 | RLD: No | RS: Yes | Type: RX